FAERS Safety Report 23999511 (Version 1)
Quarter: 2024Q2

REPORT INFORMATION
  Report Type: Spontaneous
  Country: IL (occurrence: IL)
  Receive Date: 20240621
  Receipt Date: 20240621
  Transmission Date: 20240716
  Serious: Yes (Other)
  Sender: FDA-Public Use
  Company Number: IL-PFIZER INC-PV202400080749

PATIENT
  Age: 3 Year
  Sex: Female

DRUGS (1)
  1. KETALAR [Suspect]
     Active Substance: KETAMINE HYDROCHLORIDE
     Dosage: UNK
     Dates: start: 20240313

REACTIONS (1)
  - Dissociation [Recovered/Resolved]
